FAERS Safety Report 5718809-0 (Version None)
Quarter: 2008Q2

REPORT INFORMATION
  Report Type: 
  Country: None (occurrence: None)
  Receive Date: 20080425
  Receipt Date: 20080401
  Transmission Date: 20081010
  Serious: No
  Sender: FDA-Public Use
  Company Number: US-BOEHRINGER INGELHEIM GMBH, GERMANY-2008-BP-05050BP

PATIENT
  Sex: Male

DRUGS (6)
  1. SPIRIVA [Suspect]
     Indication: EMPHYSEMA
     Route: 055
     Dates: start: 20080304
  2. SPIRIVA [Suspect]
     Indication: CHRONIC OBSTRUCTIVE PULMONARY DISEASE
  3. LISINOPRIL [Concomitant]
     Indication: HYPERTENSION
  4. ALBUTEROL [Concomitant]
  5. ASPIRIN [Concomitant]
     Indication: PROPHYLAXIS
  6. MUCCINEX [Concomitant]

REACTIONS (4)
  - CONSTIPATION [None]
  - DRUG EFFECT DECREASED [None]
  - DRY MOUTH [None]
  - PHARYNGOLARYNGEAL PAIN [None]
